FAERS Safety Report 22146746 (Version 2)
Quarter: 2023Q1

REPORT INFORMATION
  Report Type: Spontaneous
  Country: US (occurrence: US)
  Receive Date: 20230328
  Receipt Date: 20230330
  Transmission Date: 20230418
  Serious: Yes (Hospitalization, Other)
  Sender: FDA-Public Use
  Company Number: US-MLMSERVICE-20230317-4170529-1

PATIENT
  Age: 34 Year
  Sex: Male

DRUGS (3)
  1. HYDROCORTISONE SODIUM SUCCINATE [Suspect]
     Active Substance: HYDROCORTISONE SODIUM SUCCINATE
     Indication: Hyperthyroidism
     Dosage: 100 MG, 3X/DAY, 4 DOSES
     Route: 042
  2. METHIMAZOLE [Concomitant]
     Active Substance: METHIMAZOLE
     Indication: Basedow^s disease
     Dosage: 30 MG, 2X/DAY
     Route: 048
  3. PROPRANOLOL [Concomitant]
     Active Substance: PROPRANOLOL HYDROCHLORIDE
     Indication: Basedow^s disease
     Dosage: 40 MG, 3X/DAY
     Route: 048

REACTIONS (4)
  - Hyperglycaemia [Recovered/Resolved]
  - Thyrotoxic periodic paralysis [Recovered/Resolved]
  - Hypokalaemia [Recovered/Resolved]
  - Off label use [Unknown]
